FAERS Safety Report 16933947 (Version 1)
Quarter: 2019Q4

REPORT INFORMATION
  Report Type: Spontaneous
  Country: US (occurrence: US)
  Receive Date: 20191018
  Receipt Date: 20191018
  Transmission Date: 20200122
  Serious: No
  Sender: FDA-Public Use
  Company Number: US-009507513-1910USA004494

PATIENT
  Age: 52 Year
  Sex: Female
  Weight: 67.12 kg

DRUGS (2)
  1. SPIRIVA [Concomitant]
     Active Substance: TIOTROPIUM BROMIDE MONOHYDRATE
     Dosage: UNK
  2. PROVENTIL [Suspect]
     Active Substance: ALBUTEROL
     Indication: DYSPNOEA
     Dosage: 2 PUFFS/ 4 TIMES DAILY AS NEEDED
     Route: 055

REACTIONS (5)
  - Cough [Not Recovered/Not Resolved]
  - Poor quality device used [Unknown]
  - Product taste abnormal [Unknown]
  - Product odour abnormal [Unknown]
  - Product quality issue [Unknown]

NARRATIVE: CASE EVENT DATE: 20190922
